FAERS Safety Report 7281248-8 (Version None)
Quarter: 2011Q1

REPORT INFORMATION
  Report Type: 
  Country: None (occurrence: None)
  Receive Date: 20110208
  Receipt Date: 20110202
  Transmission Date: 20110831
  Serious: Yes (Other)
  Sender: FDA-Public Use
  Company Number: CHPA2011US02191

PATIENT
  Age: 80 Year
  Sex: Female
  Weight: 69.841 kg

DRUGS (1)
  1. BENEFIBER STICK PACKS [Suspect]
     Indication: MINERAL SUPPLEMENTATION
     Dosage: 1 PACKET ONCE
     Route: 048
     Dates: start: 20110129, end: 20110129

REACTIONS (1)
  - VOMITING [None]
